FAERS Safety Report 5404249-0 (Version None)
Quarter: 2007Q3

REPORT INFORMATION
  Report Type: 
  Country: None (occurrence: None)
  Receive Date: 20070731
  Receipt Date: 20070719
  Transmission Date: 20080115
  Serious: Yes (Hospitalization)
  Sender: FDA-Public Use
  Company Number: GXBR2006US00504

PATIENT
  Age: 57 Year
  Sex: Female
  Weight: 98.4 kg

DRUGS (11)
  1. METOPROLOL TARTRATE [Suspect]
     Indication: ARRHYTHMIA
     Dosage: 25 MG, BID, ORAL; 25 MG, BID, ORAL; 25 MG, TID, ORAL; 50 MG, TID, ORAL
     Route: 048
     Dates: start: 20040607, end: 20050402
  2. METOPROLOL TARTRATE [Suspect]
     Indication: ARRHYTHMIA
     Dosage: 25 MG, BID, ORAL; 25 MG, BID, ORAL; 25 MG, TID, ORAL; 50 MG, TID, ORAL
     Route: 048
     Dates: start: 20050505, end: 20051201
  3. METOPROLOL SUCCINATE [Suspect]
     Indication: ARRHYTHMIA
     Dosage: 50 MG,
  4. CLONIDINE [Concomitant]
  5. LASIX [Concomitant]
  6. POTASSIUM CHLORIDE [Concomitant]
  7. OXYCODONE HCL [Concomitant]
  8. XANAX [Concomitant]
  9. MAGNESIUM SALICYLATE (MAGNESIUM SALICYLATE) [Concomitant]
  10. SEROQUEL [Concomitant]
  11. EFFEXOR [Concomitant]

REACTIONS (9)
  - ANXIETY [None]
  - BLOOD PRESSURE INCREASED [None]
  - DEREALISATION [None]
  - HALLUCINATIONS, MIXED [None]
  - INSOMNIA [None]
  - MOOD ALTERED [None]
  - NERVOUSNESS [None]
  - PSYCHOTIC DISORDER [None]
  - VOMITING [None]
